FAERS Safety Report 6285184-5 (Version None)
Quarter: 2009Q3

REPORT INFORMATION
  Report Type: 
  Country: None (occurrence: None)
  Receive Date: 20090727
  Receipt Date: 20090715
  Transmission Date: 20100115
  Serious: Yes (Other)
  Sender: FDA-Public Use
  Company Number: PHEH2009US07172

PATIENT
  Sex: Female

DRUGS (1)
  1. ENABLEX [Suspect]
     Indication: POLLAKIURIA
     Dosage: 7.5 UNK, QD
     Route: 048

REACTIONS (3)
  - GLAUCOMA [None]
  - TREATMENT NONCOMPLIANCE [None]
  - URINARY RETENTION [None]
